FAERS Safety Report 9776676 (Version 4)
Quarter: 2013Q4

REPORT INFORMATION
  Report Type: Not Available
  Country: US (occurrence: US)
  Receive Date: 20131220
  Receipt Date: 20131227
  Transmission Date: 20140711
  Serious: Yes (Death)
  Sender: FDA-Public Use
  Company Number: US-ONYX-2013-1686

PATIENT
  Age: 79 Year
  Sex: Male

DRUGS (8)
  1. KYPROLIS [Suspect]
     Indication: PLASMA CELL MYELOMA
     Dosage: 39 MG TOTAL DOSE
     Route: 042
     Dates: start: 20131007, end: 2013
  2. CALCUIM [Concomitant]
     Indication: PRODUCT USED FOR UNKNOWN INDICATION
  3. CLARATIN [Concomitant]
     Indication: PRODUCT USED FOR UNKNOWN INDICATION
  4. ALLOPURINOL [Concomitant]
     Indication: PRODUCT USED FOR UNKNOWN INDICATION
  5. VITAMIN B [Concomitant]
     Indication: PRODUCT USED FOR UNKNOWN INDICATION
  6. ZOFRAN [Concomitant]
     Indication: PROPHYLAXIS OF NAUSEA AND VOMITING
  7. ACYCLOVIR [Concomitant]
     Indication: PROPHYLAXIS
  8. NEUPOGEN [Concomitant]
     Indication: WHITE BLOOD CELL COUNT DECREASED
     Dates: end: 2013

REACTIONS (8)
  - Death [Fatal]
  - Oedema peripheral [Not Recovered/Not Resolved]
  - Haemoglobin decreased [Recovered/Resolved]
  - Platelet count decreased [Recovering/Resolving]
  - Haematocrit decreased [Recovered/Resolved]
  - Flatulence [Unknown]
  - Constipation [Unknown]
  - Cough [Unknown]
